FAERS Safety Report 7636001-X (Version None)
Quarter: 2011Q3

REPORT INFORMATION
  Report Type: 
  Country: None (occurrence: None)
  Receive Date: 20110726
  Receipt Date: 20110713
  Transmission Date: 20111222
  Serious: Yes (Other)
  Sender: FDA-Public Use
  Company Number: US-ROCHE-772899

PATIENT
  Sex: Female
  Weight: 47.6 kg

DRUGS (2)
  1. ACCUTANE [Suspect]
     Indication: ACNE
     Route: 048
     Dates: start: 19990630, end: 19991015
  2. NAPROXEN [Concomitant]

REACTIONS (10)
  - INTESTINAL POLYP [None]
  - COLITIS ULCERATIVE [None]
  - INFLAMMATORY BOWEL DISEASE [None]
  - DEPRESSION [None]
  - XEROSIS [None]
  - DRY SKIN [None]
  - SUICIDAL IDEATION [None]
  - CHEILITIS [None]
  - FATIGUE [None]
  - DERMATITIS [None]
